FAERS Safety Report 4547998-9 (Version None)
Quarter: 2004Q4

REPORT INFORMATION
  Report Type: 
  Country: None (occurrence: None)
  Receive Date: 20041220
  Receipt Date: 20040722
  Transmission Date: 20050328
  Serious: Yes (Hospitalization, Other)
  Sender: FDA-Public Use
  Company Number: USA040773345

PATIENT
  Age: 36 Year
  Sex: Female
  Weight: 91 kg

DRUGS (4)
  1. HUMULIN R [Suspect]
     Dosage: 12 U/3 DAY
     Dates: start: 19890101, end: 20000501
  2. HUMULIN N [Suspect]
     Dosage: 17 U AT BEDTIME
     Dates: start: 19890101
  3. HUMULIN U [Suspect]
     Dosage: 17 U AT BEDTIME
     Dates: end: 20000501
  4. HUMULIN 70/30 [Suspect]
     Dates: start: 20000501

REACTIONS (5)
  - ASTHENIA [None]
  - BLOOD GLUCOSE DECREASED [None]
  - BLOOD GLUCOSE INCREASED [None]
  - DIABETIC COMA [None]
  - MEMORY IMPAIRMENT [None]
